FAERS Safety Report 24711318 (Version 1)
Quarter: 2024Q4

REPORT INFORMATION
  Report Type: Spontaneous
  Country: CN (occurrence: CN)
  Receive Date: 20241209
  Receipt Date: 20241209
  Transmission Date: 20250115
  Serious: Yes (Hospitalization, Other)
  Sender: PFIZER
  Company Number: CN-PFIZER INC-PV202400157843

PATIENT
  Age: 48 Year
  Sex: Female
  Weight: 57 kg

DRUGS (9)
  1. PACLITAXEL [Suspect]
     Active Substance: PACLITAXEL
     Indication: Neoplasm
     Dosage: UNK, CYCLIC
  2. PACLITAXEL [Suspect]
     Active Substance: PACLITAXEL
     Indication: Ovarian cancer stage III
     Dosage: UNK, CYCLIC
  3. PACLITAXEL [Suspect]
     Active Substance: PACLITAXEL
     Dosage: UNK, CYCLIC
  4. PACLITAXEL [Suspect]
     Active Substance: PACLITAXEL
     Dosage: 210 MG, CYCLIC
     Route: 041
     Dates: start: 20210624, end: 20210624
  5. CISPLATIN [Suspect]
     Active Substance: CISPLATIN
     Indication: Neoplasm
     Dosage: UNK, CYCLIC
  6. CISPLATIN [Suspect]
     Active Substance: CISPLATIN
     Indication: Ovarian cancer stage III
     Dosage: UNK, CYCLIC
  7. CISPLATIN [Suspect]
     Active Substance: CISPLATIN
     Dosage: UNK, CYCLIC
  8. CISPLATIN [Suspect]
     Active Substance: CISPLATIN
     Dosage: 120 MG, CYCLIC
     Route: 041
     Dates: start: 20210624, end: 20210624
  9. OMEPRAZOLE SODIUM [Concomitant]
     Active Substance: OMEPRAZOLE SODIUM
     Indication: Hyperchlorhydria
     Dosage: 40 MG, 1X/DAY
     Route: 041
     Dates: start: 20210624, end: 20210624

REACTIONS (1)
  - Drug-induced liver injury [Recovering/Resolving]

NARRATIVE: CASE EVENT DATE: 20210625
